FAERS Safety Report 5545617-6 (Version None)
Quarter: 2007Q4

REPORT INFORMATION
  Report Type: 
  Country: None (occurrence: None)
  Receive Date: 20071211
  Receipt Date: 20071126
  Transmission Date: 20080405
  Serious: Yes (Other)
  Sender: FDA-Public Use
  Company Number: IT-ELI_LILLY_AND_COMPANY-IT200711006223

PATIENT
  Age: 70 Year
  Sex: Male

DRUGS (1)
  1. CIALIS [Suspect]
     Indication: ERECTILE DYSFUNCTION
     Dosage: 5 MG, WEEKLY (1/W)
     Route: 048
     Dates: start: 20050101

REACTIONS (5)
  - EPISTAXIS [None]
  - EYE PAIN [None]
  - OPTIC NERVE DISORDER [None]
  - VISION BLURRED [None]
  - VISUAL DISTURBANCE [None]
